FAERS Safety Report 5393049-6 (Version None)
Quarter: 2007Q3

REPORT INFORMATION
  Report Type: 
  Country: None (occurrence: None)
  Receive Date: 20070719
  Receipt Date: 20070703
  Transmission Date: 20080115
  Serious: Yes (Life-Threatening, Hospitalization)
  Sender: FDA-Public Use
  Company Number: DSA_30182_2007

PATIENT
  Sex: Male

DRUGS (3)
  1. TAVOR /00273201/ (TAVOR) [Suspect]
     Dosage: (ORAL)
     Route: 048
     Dates: start: 20070701, end: 20070701
  2. PARACETAMOL (PARACETAMOL) 500 MG [Suspect]
     Dosage: (3500 MG 1X ORAL)
     Route: 048
     Dates: start: 20070701, end: 20070701
  3. STANGYL 25MG [Suspect]
     Dosage: 900 MG 1 X ORAL
     Route: 048
     Dates: start: 20070701, end: 20070701

REACTIONS (4)
  - COMA [None]
  - MULTIPLE DRUG OVERDOSE INTENTIONAL [None]
  - SUICIDE ATTEMPT [None]
  - TACHYCARDIA [None]
